FAERS Safety Report 10235047 (Version 1)
Quarter: 2014Q2

REPORT INFORMATION
  Report Type: Spontaneous
  Country: US (occurrence: None)
  Receive Date: 20140611
  Receipt Date: 20140611
  Transmission Date: 20141212
  Serious: Yes (Hospitalization)
  Sender: FDA-Public Use
  Company Number: USW201403-000063

PATIENT
  Age: 76 Year
  Sex: Female

DRUGS (7)
  1. APOKYN [Suspect]
     Indication: PARKINSON^S DISEASE
     Route: 058
     Dates: start: 2013
  2. ACTONEL (RISEDRONATE SODIUM) [Concomitant]
  3. CARBIDOPA/LEVODOPA (CARBIDOPA, LEVODOPA) [Concomitant]
  4. LEVOTHYROXINE (LEVOTHYROXINE) [Concomitant]
  5. NOVOLOG (INSULIN ASPART) [Concomitant]
  6. LANTUS (INSULIN GLARGINE) [Concomitant]
  7. AMANTADINE (AMATADINE) [Concomitant]

REACTIONS (5)
  - Drug hypersensitivity [None]
  - Injection site pruritus [None]
  - Injection site erythema [None]
  - Injection site swelling [None]
  - Transient ischaemic attack [None]
